FAERS Safety Report 4457604-X (Version None)
Quarter: 2004Q3

REPORT INFORMATION
  Report Type: 
  Country: None (occurrence: None)
  Receive Date: 20040901
  Receipt Date: 20040720
  Transmission Date: 20050211
  Serious: No
  Sender: FDA-Public Use
  Company Number: FROV000213

PATIENT
  Age: 30 Year
  Sex: Female

DRUGS (1)
  1. FROVA [Suspect]
     Indication: MIGRAINE
     Dosage: 2.5 MG ORAL
     Route: 048
     Dates: start: 20040720

REACTIONS (1)
  - MIGRAINE [None]
